FAERS Safety Report 10144489 (Version 2)
Quarter: 2014Q2

REPORT INFORMATION
  Report Type: Spontaneous
  Country: FR (occurrence: FR)
  Receive Date: 20140430
  Receipt Date: 20140430
  Transmission Date: 20141212
  Serious: Yes (Hospitalization)
  Sender: FDA-Public Use
  Company Number: FR-ELI_LILLY_AND_COMPANY-FR201304005741

PATIENT
  Sex: Male

DRUGS (9)
  1. ZYPREXA [Suspect]
     Indication: SCHIZOPHRENIA
     Dosage: 10 MG, QD
     Route: 048
     Dates: start: 20010506, end: 20050916
  2. ZYPREXA [Suspect]
     Dosage: 15 MG, QD
     Route: 048
     Dates: start: 20050917, end: 2008
  3. ZYPREXA [Suspect]
     Dosage: 10 MG, QD
     Route: 048
     Dates: start: 20090129, end: 201011
  4. RISPERDAL CONSTA LP [Concomitant]
     Indication: SCHIZOPHRENIA
     Dosage: 37.5 MG, 2/M
     Route: 065
     Dates: start: 20060928, end: 20061113
  5. RISPERDAL CONSTA LP [Concomitant]
     Dosage: 37.5 MG, 2/M
     Route: 065
     Dates: start: 20080104, end: 20080305
  6. RISPERDAL CONSTA LP [Concomitant]
     Dosage: 37.5 MG, 2/M
     Route: 030
     Dates: start: 20090129, end: 20090213
  7. RISPERDAL [Concomitant]
     Indication: SCHIZOPHRENIA
     Dosage: 50 MG, OTHER
     Route: 065
     Dates: start: 20090129
  8. LEPONEX [Concomitant]
     Indication: PRODUCT USED FOR UNKNOWN INDICATION
     Dosage: 300 MG, UNKNOWN
     Route: 065
     Dates: start: 20100929
  9. LEPONEX [Concomitant]
     Dosage: 100 MG, TID
     Route: 065
     Dates: start: 20140319

REACTIONS (13)
  - Delirium [Unknown]
  - Abnormal behaviour [Unknown]
  - Delirium [Unknown]
  - Anxiety [Unknown]
  - Neurological decompensation [Unknown]
  - Delirium [Unknown]
  - Anxiety [Unknown]
  - Anxiety [Unknown]
  - Dyskinesia [Not Recovered/Not Resolved]
  - Elevated mood [Unknown]
  - Choreoathetosis [Unknown]
  - Gait disturbance [Not Recovered/Not Resolved]
  - Dysthymic disorder [Unknown]
